FAERS Safety Report 8494199 (Version 5)
Quarter: 2013Q2

REPORT INFORMATION
  Report Type: Spontaneous
  Country: DE (occurrence: None)
  Receive Date: 20120320
  Receipt Date: 20130501
  Transmission Date: 20140414
  Serious: Yes (Hospitalization)
  Sender: FDA-Public Use
  Company Number: GAM-024-12-DE

PATIENT
  Age: 40 Year
  Sex: Male

DRUGS (10)
  1. OCTAGAM [Suspect]
     Indication: INFECTION
     Dosage: (1X 1/D)
     Route: 042
     Dates: start: 20110723, end: 20110813
  2. OCTAGAM [Suspect]
     Indication: DIARRHOEA
     Dosage: (1X 1/D)
     Route: 042
     Dates: start: 20110723, end: 20110813
  3. OCTAGAM [Suspect]
     Indication: INFECTION
     Dosage: (1X 1/D)
     Route: 042
     Dates: start: 20110723, end: 20110813
  4. PREDNISOLONE [Suspect]
     Indication: DIARRHOEA
     Dosage: (1X 1/D)
     Route: 048
     Dates: start: 20110813, end: 20110923
  5. OMEPRAZOLE [Concomitant]
  6. SULFAMETHOXAZOLE AND TRIMETHOPRIM [Concomitant]
  7. LEVOFLOXACIN [Concomitant]
  8. MESALAMINE [Concomitant]
  9. FLUCONAZOLE [Concomitant]
  10. VANCOMYCIN [Concomitant]

REACTIONS (21)
  - Peripheral artery thrombosis [None]
  - Pyrexia [None]
  - Diarrhoea [None]
  - Colitis ulcerative [None]
  - Nasopharyngitis [None]
  - Femoral artery occlusion [None]
  - Hyperhomocysteinaemia [None]
  - Toe amputation [None]
  - Lipoprotein (a) increased [None]
  - Acquired protein S deficiency [None]
  - Hypercoagulation [None]
  - Coagulation factor VIII level increased [None]
  - Hyperfibrinogenaemia [None]
  - Thromboangiitis obliterans [None]
  - Foot amputation [None]
  - Impaired healing [None]
  - Pain in extremity [None]
  - Infection [None]
  - Device occlusion [None]
  - Peripheral artery thrombosis [None]
  - Peripheral arterial occlusive disease [None]
